FAERS Safety Report 10736951 (Version 1)
Quarter: 2015Q1

REPORT INFORMATION
  Report Type: Spontaneous
  Country: US (occurrence: None)
  Receive Date: 20150122
  Receipt Date: 20150122
  Transmission Date: 20150721
  Serious: Yes (Hospitalization, Other)
  Sender: FDA-Public Use
  Company Number: 2015-US-000508

PATIENT
  Age: 52 Year
  Sex: Female
  Weight: 120.2 kg

DRUGS (1)
  1. XYREM [Suspect]
     Active Substance: SODIUM OXYBATE
     Indication: NARCOLEPSY
     Dosage: 2.25 G, BID, ORAL
     Route: 048
     Dates: start: 201011, end: 2010

REACTIONS (3)
  - Cholelithiasis [None]
  - Pulmonary oedema [None]
  - Nephrolithiasis [None]

NARRATIVE: CASE EVENT DATE: 20150106
